FAERS Safety Report 7151775-2 (Version None)
Quarter: 2010Q4

REPORT INFORMATION
  Report Type: 
  Country: None (occurrence: None)
  Receive Date: 20101123
  Receipt Date: 20100831
  Transmission Date: 20110411
  Serious: No
  Sender: FDA-Public Use
  Company Number: 018113

PATIENT
  Sex: Female

DRUGS (1)
  1. CIMZIA [Suspect]
     Dosage: (4 DOSES SUBCUTANEOUS)
     Route: 058
     Dates: start: 20100603, end: 20100101

REACTIONS (1)
  - DRUG INEFFECTIVE [None]
